FAERS Safety Report 5255116-7 (Version None)
Quarter: 2007Q1

REPORT INFORMATION
  Report Type: 
  Country: None (occurrence: None)
  Receive Date: 20070305
  Receipt Date: 20070220
  Transmission Date: 20070707
  Serious: Yes (Hospitalization)
  Sender: FDA-Public Use
  Company Number: PHHO2007BE03347

PATIENT
  Age: 56 Year
  Sex: Male
  Weight: 82.3 kg

DRUGS (12)
  1. MYCOPHENOLIC ACID ERL+ [Suspect]
     Indication: RENAL TRANSPLANT
     Dosage: 1440 MG/DAILY
     Route: 048
     Dates: start: 20060801
  2. NEORAL [Suspect]
     Indication: RENAL TRANSPLANT
     Dosage: 275 MG/DAILY
     Route: 048
     Dates: start: 20060801
  3. OMEPRAZOLE [Concomitant]
  4. AMLODIPINE [Concomitant]
  5. BACTRIM DS [Concomitant]
  6. GLURENORM [Concomitant]
  7. SELOZOK [Concomitant]
  8. DIOVANE [Concomitant]
  9. CINACALCET [Concomitant]
  10. MAGNESIUM CARBONATE [Concomitant]
  11. CEFTRIAXONE [Concomitant]
  12. TIBERAL [Concomitant]

REACTIONS (8)
  - ABDOMINAL PAIN [None]
  - ABSCESS [None]
  - ABSCESS DRAINAGE [None]
  - C-REACTIVE PROTEIN INCREASED [None]
  - COLECTOMY [None]
  - DIVERTICULITIS [None]
  - LARGE INTESTINE ANASTOMOSIS [None]
  - LYMPHOCELE [None]
